FAERS Safety Report 17670186 (Version 1)
Quarter: 2020Q2

REPORT INFORMATION
  Report Type: Spontaneous
  Country: US (occurrence: US)
  Receive Date: 20200415
  Receipt Date: 20200415
  Transmission Date: 20200713
  Serious: Yes (Hospitalization)
  Sender: FDA-Public Use
  Company Number: US-ALVOGEN-2020-ALVOGEN-108102

PATIENT
  Age: 62 Year
  Sex: Female

DRUGS (1)
  1. GRALISE [Suspect]
     Active Substance: GABAPENTIN
     Indication: FIBROMYALGIA
     Dosage: TAKE 3 TABLETS BY MOUTH DAILY WITH DINNER
     Route: 048

REACTIONS (2)
  - Malaise [Recovering/Resolving]
  - Adverse drug reaction [Recovering/Resolving]
